FAERS Safety Report 18962255 (Version 1)
Quarter: 2021Q1

REPORT INFORMATION
  Report Type: Spontaneous
  Country: US (occurrence: US)
  Receive Date: 20210302
  Receipt Date: 20210302
  Transmission Date: 20210420
  Serious: No
  Sender: FDA-Public Use
  Company Number: US-SCIEGEN-2021SCISPO00210

PATIENT
  Age: 80 Year
  Sex: Male

DRUGS (1)
  1. GABAPENTIN TABLETS [Suspect]
     Active Substance: GABAPENTIN
     Indication: PRODUCT USED FOR UNKNOWN INDICATION
     Route: 048

REACTIONS (3)
  - Apraxia [Unknown]
  - Somnolence [Unknown]
  - Fatigue [Unknown]
